FAERS Safety Report 13349925 (Version 1)
Quarter: 2017Q1

REPORT INFORMATION
  Report Type: Spontaneous
  Country: US (occurrence: US)
  Receive Date: 20170319
  Receipt Date: 20170319
  Transmission Date: 20170429
  Serious: Yes (Other)
  Sender: FDA-Public Use
  Company Number: None

PATIENT
  Age: 60 Year
  Sex: Female
  Weight: 56.25 kg

DRUGS (1)
  1. FINACEA FOAM [Suspect]
     Active Substance: AZELAIC ACID
     Indication: ROSACEA
     Dosage: OTHER ROUTE:APPLY TO FACE?
     Route: 061
     Dates: start: 20170317, end: 20170319

REACTIONS (6)
  - Facial pain [None]
  - Erythema [None]
  - Nausea [None]
  - Skin disorder [None]
  - Feeling hot [None]
  - Swelling face [None]

NARRATIVE: CASE EVENT DATE: 20170319
